FAERS Safety Report 17871184 (Version 1)
Quarter: 2020Q2

REPORT INFORMATION
  Report Type: Spontaneous
  Country: US (occurrence: US)
  Receive Date: 20200605
  Receipt Date: 20200605
  Transmission Date: 20200714
  Serious: Yes (Death)
  Sender: FDA-Public Use
  Company Number: None

PATIENT
  Age: 2 Year
  Sex: Male

DRUGS (3)
  1. SODIUM CHLORIDE 3% INHALATION SOLUTION [Concomitant]
     Active Substance: SODIUM CHLORIDE
  2. LANSOPRAZOLE SUSPENSION [Concomitant]
     Dates: start: 20190405, end: 20200501
  3. TOBRAMYCIN INHALATION SOLUTION 300MG/5ML MG [Suspect]
     Active Substance: TOBRAMYCIN
     Indication: PSEUDOMONAS INFECTION
     Route: 055

REACTIONS (1)
  - Death [None]

NARRATIVE: CASE EVENT DATE: 20200501
